FAERS Safety Report 9031765 (Version 1)
Quarter: 2013Q1

REPORT INFORMATION
  Report Type: Spontaneous
  Country: IT (occurrence: IT)
  Receive Date: 20130124
  Receipt Date: 20130124
  Transmission Date: 20140127
  Serious: Yes (Other)
  Sender: FDA-Public Use
  Company Number: IT-PFIZER INC-2013019048

PATIENT
  Age: 49 Year
  Sex: Female

DRUGS (3)
  1. LINEZOLID [Suspect]
     Dosage: 600 MG, UNK
     Route: 048
  2. CEFTAZIDIME [Concomitant]
     Dosage: 2 G, 2X/DAY
  3. IMIPENEM [Concomitant]

REACTIONS (1)
  - Bradycardia [Recovered/Resolved]
